FAERS Safety Report 4642384-5 (Version None)
Quarter: 2005Q2

REPORT INFORMATION
  Report Type: 
  Country: None (occurrence: None)
  Receive Date: 20050422
  Receipt Date: 20050317
  Transmission Date: 20051028
  Serious: Yes (Hospitalization)
  Sender: FDA-Public Use
  Company Number: AT-GLAXOSMITHKLINE-B0375218A

PATIENT
  Age: 58 Year
  Sex: Male
  Weight: 81.4 kg

DRUGS (5)
  1. GW679769 [Suspect]
     Indication: PROPHYLAXIS OF NAUSEA AND VOMITING
     Dosage: 100MG PER DAY
     Route: 048
     Dates: start: 20050223, end: 20050225
  2. ONDANSETRON [Suspect]
     Indication: PROPHYLAXIS OF NAUSEA AND VOMITING
     Dosage: 32MG SINGLE DOSE
     Route: 042
     Dates: start: 20050223, end: 20050223
  3. DEXAMETHASONE [Suspect]
     Indication: PROPHYLAXIS OF NAUSEA AND VOMITING
     Dosage: 12MG PER DAY
     Route: 048
     Dates: start: 20050223, end: 20050226
  4. NEXIUM [Concomitant]
     Indication: PROPHYLAXIS AGAINST GASTROINTESTINAL ULCER
     Route: 048
     Dates: start: 20050120
  5. VOLTAREN [Concomitant]
     Indication: PAIN
     Route: 048
     Dates: start: 20050120

REACTIONS (1)
  - MUCOSAL INFLAMMATION [None]
